FAERS Safety Report 8136565-6 (Version None)
Quarter: 2012Q1

REPORT INFORMATION
  Report Type: 
  Country: None (occurrence: None)
  Receive Date: 20120214
  Receipt Date: 20120208
  Transmission Date: 20120608
  Serious: Yes (Hospitalization, Other)
  Sender: FDA-Public Use
  Company Number: PHHY2011CA73116

PATIENT
  Sex: Female

DRUGS (6)
  1. AMITRIPTYLINE HCL [Concomitant]
  2. NAPROXEN [Concomitant]
  3. LEVOTHYROXINE SODIUM [Concomitant]
  4. CELEXA [Concomitant]
  5. ATORVASTATIN [Concomitant]
  6. ZOLEDRONOC ACID [Suspect]
     Indication: OSTEOPOROSIS
     Dosage: 5 MG, UNK
     Route: 042
     Dates: start: 20110704

REACTIONS (7)
  - RASH [None]
  - DYSPNOEA [None]
  - DECREASED APPETITE [None]
  - ARTHRALGIA [None]
  - NAUSEA [None]
  - SKIN IRRITATION [None]
  - BONE PAIN [None]
